FAERS Safety Report 8128516-5 (Version None)
Quarter: 2012Q1

REPORT INFORMATION
  Report Type: 
  Country: None (occurrence: None)
  Receive Date: 20120210
  Receipt Date: 20110609
  Transmission Date: 20120608
  Serious: Yes (Hospitalization)
  Sender: FDA-Public Use
  Company Number: JP-ROCHE-626529

PATIENT
  Sex: Female
  Weight: 40 kg

DRUGS (25)
  1. ACTEMRA [Suspect]
     Indication: RHEUMATOID ARTHRITIS
     Route: 041
     Dates: start: 20080806, end: 20080806
  2. ACTEMRA [Suspect]
     Route: 041
     Dates: start: 20090204, end: 20090204
  3. PREDNISOLONE AND PREDNISOLONE ACETATE AND PREDNISOLONE SODIUM SUCCINAT [Suspect]
     Indication: RHEUMATOID ARTHRITIS
     Route: 048
  4. ACTEMRA [Suspect]
     Route: 041
     Dates: start: 20081028, end: 20081028
  5. ACTEMRA [Suspect]
     Route: 041
     Dates: start: 20090729, end: 20090729
  6. PREDNISOLONE AND PREDNISOLONE ACETATE AND PREDNISOLONE SODIUM SUCCINAT [Suspect]
     Route: 048
  7. ACTEMRA [Suspect]
     Route: 041
     Dates: start: 20081126, end: 20081126
  8. ACTEMRA [Suspect]
     Route: 041
     Dates: start: 20090114, end: 20090114
  9. ACTEMRA [Suspect]
     Route: 041
     Dates: start: 20090325, end: 20090325
  10. ACTEMRA [Suspect]
     Route: 041
     Dates: start: 20090610, end: 20090610
  11. ACTEMRA [Suspect]
     Route: 041
     Dates: start: 20090630, end: 20090630
  12. ACTEMRA [Suspect]
     Route: 041
     Dates: start: 20080902, end: 20080902
  13. ACTEMRA [Suspect]
     Route: 041
     Dates: start: 20100105, end: 20100310
  14. ACTEMRA [Suspect]
     Route: 041
     Dates: start: 20100331, end: 20100512
  15. PROGRAF [Concomitant]
     Route: 048
  16. ONEALFA [Concomitant]
     Dosage: FORM REPORTED: PERORAL AGENT
     Route: 048
  17. VOLTAREN [Concomitant]
     Dosage: FORM REPORTED: PERORAL AGENT
     Route: 048
  18. MUCOSTA [Concomitant]
     Dosage: FORM REPORTED: PERORAL AGENT.
     Route: 048
  19. ACTEMRA [Suspect]
     Route: 041
     Dates: start: 20081217, end: 20081217
  20. ACTEMRA [Suspect]
     Route: 041
     Dates: start: 20090819, end: 20091111
  21. PREDNISOLONE AND PREDNISOLONE ACETATE AND PREDNISOLONE SODIUM SUCCINAT [Suspect]
     Route: 048
     Dates: start: 20080903, end: 20081028
  22. ACTEMRA [Suspect]
     Route: 041
     Dates: start: 20100602, end: 20100714
  23. ACTEMRA [Suspect]
     Route: 041
     Dates: start: 20110104, end: 20110420
  24. FOSAMAX [Concomitant]
     Dosage: DRUG REPORTED AS FOSAMAC 5 MG
     Route: 048
  25. LANSOPRAZOLE [Concomitant]
     Route: 048

REACTIONS (4)
  - PNEUMOTHORAX [None]
  - DISLOCATION OF VERTEBRA [None]
  - JOINT ARTHROPLASTY [None]
  - INFECTIOUS PLEURAL EFFUSION [None]
